FAERS Safety Report 12080819 (Version 2)
Quarter: 2016Q1

REPORT INFORMATION
  Report Type: Spontaneous
  Country: DE (occurrence: DE)
  Receive Date: 20160216
  Receipt Date: 20160219
  Transmission Date: 20160526
  Serious: Yes (Death)
  Sender: FDA-Public Use
  Company Number: DE-B.I. PHARMACEUTICALS,INC./RIDGEFIELD-2016-BI-08779DE

PATIENT
  Age: 80 Year
  Sex: Female

DRUGS (2)
  1. PRADAXA [Suspect]
     Active Substance: DABIGATRAN ETEXILATE MESYLATE
     Indication: PRODUCT USED FOR UNKNOWN INDICATION
     Dosage: 220 MG
     Route: 065
  2. PRAXBIND [Suspect]
     Active Substance: IDARUCIZUMAB
     Indication: HAEMORRHAGE
     Route: 065

REACTIONS (9)
  - Coagulopathy [Unknown]
  - Coagulation time prolonged [Unknown]
  - Creatinine renal clearance decreased [Unknown]
  - Coagulation factor increased [Unknown]
  - Peritonitis [Fatal]
  - Prothrombin time prolonged [Unknown]
  - Haemorrhage [Unknown]
  - Activated partial thromboplastin time prolonged [Unknown]
  - Intestinal perforation [Fatal]
